FAERS Safety Report 9730855 (Version 2)
Quarter: 2013Q4

REPORT INFORMATION
  Report Type: Report from Study
  Country: RS (occurrence: RS)
  Receive Date: 20131203
  Receipt Date: 20131203
  Transmission Date: 20140711
  Serious: Yes (Life-Threatening, Hospitalization, Other)
  Sender: FDA-Public Use
  Company Number: RS-ROCHE-1264316

PATIENT
  Age: 50 Year
  Sex: Male
  Weight: 57 kg

DRUGS (35)
  1. OBINUTUZUMAB [Suspect]
     Indication: DIFFUSE LARGE B-CELL LYMPHOMA
     Dosage: DOSE CONCENTRATION : 4MG/ML DATE OF MOST RECENT DOSE PRIOR TO EVENT: 13/AUG/2013
     Route: 042
     Dates: start: 20130813
  2. CYCLOPHOSPHAMIDE [Suspect]
     Indication: DIFFUSE LARGE B-CELL LYMPHOMA
     Dosage: DATE OF MOST RECENT DOSE PRIOR TO EVENT: 13/AUG/2013
     Route: 042
     Dates: start: 20130813
  3. DOXORUBICIN [Suspect]
     Indication: DIFFUSE LARGE B-CELL LYMPHOMA
     Dosage: DATE OF MOST RECENT DOSE PRIOR TO EVENT: 13/AUG/2013
     Route: 042
     Dates: start: 20130813
  4. VINCRISTINE [Suspect]
     Indication: DIFFUSE LARGE B-CELL LYMPHOMA
     Dosage: DATE OF MOST RECENT DOSE PRIOR TO EVENT: 13/AUG/2013
     Route: 042
     Dates: start: 20130813
  5. PREDNISONE [Suspect]
     Indication: DIFFUSE LARGE B-CELL LYMPHOMA
     Dosage: DATE OF MOST RECENT DOSE PRIOR TO AE ONSET : 17/AUG/2013
     Route: 048
     Dates: start: 20130813
  6. ALLOPURINOL [Concomitant]
     Route: 065
     Dates: start: 20130723, end: 20130901
  7. LEMOD SOLU [Concomitant]
     Route: 065
     Dates: start: 20130726, end: 20130812
  8. FERRUM LEK (SERBIA) [Concomitant]
     Indication: ANAEMIA
     Route: 065
     Dates: start: 20130725, end: 20130819
  9. CIPROFLOXACIN [Concomitant]
     Route: 065
     Dates: start: 20130801, end: 20130819
  10. CONTROLOC (SERBIA) [Concomitant]
     Route: 065
     Dates: start: 20130802, end: 20131028
  11. BLOOD TRANSFUSION [Concomitant]
     Indication: ANAEMIA
     Route: 065
     Dates: start: 20130726, end: 20131022
  12. NACL .9% [Concomitant]
     Route: 065
     Dates: start: 20130724, end: 201310
  13. FUROSEMIDE [Concomitant]
     Indication: HYPERKALAEMIA
     Route: 065
     Dates: start: 20130724, end: 20130724
  14. FUROSEMIDE [Concomitant]
     Indication: OEDEMA
     Route: 065
     Dates: start: 20130912, end: 20130913
  15. ALBUMINE [Concomitant]
     Indication: OEDEMA PERIPHERAL
     Route: 065
     Dates: start: 20130816, end: 20130816
  16. IMIPENEM CILASTATIN [Concomitant]
     Route: 065
     Dates: start: 20130916, end: 20130920
  17. TIENAM [Concomitant]
     Route: 065
     Dates: start: 20130916, end: 20130920
  18. ALBUMINE [Concomitant]
     Indication: HYPOALBUMINAEMIA
     Route: 065
     Dates: start: 20130911, end: 20130916
  19. ALBUMINE [Concomitant]
     Route: 065
     Dates: start: 20130816, end: 20130816
  20. GLUCOSE [Concomitant]
     Route: 065
     Dates: start: 20130911, end: 20130919
  21. RANITIDIN [Concomitant]
     Route: 065
     Dates: start: 20130911, end: 20130918
  22. SPIRONOLACTON [Concomitant]
     Indication: OEDEMA
     Route: 065
     Dates: start: 20130914, end: 20130919
  23. OLIGOVIT [Concomitant]
     Indication: HYPOVITAMINOSIS
     Route: 065
     Dates: start: 20130913, end: 20130919
  24. OLIGOVIT [Concomitant]
     Indication: MALNUTRITION
  25. ADENOSINE PHOSPHATE/BIOTIN/CARNITINE/FOLIC ACID/INOSITOL/INTRINSIC FAC [Concomitant]
     Indication: MALNUTRITION
     Dosage: REPORTED AS BEVIPLEX
     Route: 065
     Dates: start: 20130913, end: 20130919
  26. CALCIUM CARBONATE [Concomitant]
     Indication: HYPOCALCAEMIA
     Route: 065
     Dates: start: 20130914, end: 20130919
  27. CEFTAZIDIM [Concomitant]
     Indication: PROPHYLAXIS
     Route: 065
     Dates: start: 20130831, end: 20130904
  28. MEROPENEM [Concomitant]
     Indication: NEUTROPENIA
     Route: 065
     Dates: start: 20130821, end: 20130822
  29. NEUPOGEN [Concomitant]
     Route: 065
     Dates: start: 20130821, end: 20130822
  30. TRANEX [Concomitant]
     Indication: HAEMORRHAGE PROPHYLAXIS
     Route: 065
     Dates: start: 20130918, end: 20130920
  31. KYTRIL [Concomitant]
     Route: 065
     Dates: start: 20130813, end: 20130813
  32. PARACETAMOL [Concomitant]
     Indication: PROCEDURAL PAIN
     Route: 065
     Dates: start: 20130913, end: 20130913
  33. PARACETAMOL [Concomitant]
     Indication: ABDOMINAL PAIN
     Route: 065
     Dates: start: 20130818, end: 20130818
  34. VITAMIN B1 [Concomitant]
     Indication: MALNUTRITION
     Route: 065
     Dates: start: 20130912, end: 20130919
  35. VITAMIN B6 [Concomitant]
     Indication: MALNUTRITION
     Route: 065
     Dates: start: 20130912, end: 20130919

REACTIONS (3)
  - Gastrointestinal haemorrhage [Recovered/Resolved]
  - Subileus [Recovered/Resolved]
  - Pneumoperitoneum [Recovered/Resolved]
